FAERS Safety Report 5267679-6 (Version None)
Quarter: 2007Q1

REPORT INFORMATION
  Report Type: 
  Country: None (occurrence: None)
  Receive Date: 20070316
  Receipt Date: 20070307
  Transmission Date: 20070707
  Serious: Yes (Hospitalization, Disabling, Other)
  Sender: FDA-Public Use
  Company Number: US-PFIZER INC-2006129690

PATIENT
  Sex: Male
  Weight: 86.2 kg

DRUGS (2)
  1. BEXTRA [Suspect]
     Indication: BACK PAIN
     Route: 048
     Dates: start: 20041220, end: 20050128
  2. CELEBREX [Suspect]
     Indication: BACK PAIN
     Dates: start: 20040930, end: 20041221

REACTIONS (2)
  - ANXIETY [None]
  - CEREBROVASCULAR ACCIDENT [None]
